FAERS Safety Report 7788735-4 (Version None)
Quarter: 2011Q3

REPORT INFORMATION
  Report Type: 
  Country: None (occurrence: None)
  Receive Date: 20110928
  Receipt Date: 20110914
  Transmission Date: 20111222
  Serious: Yes (Other)
  Sender: FDA-Public Use
  Company Number: 1000024133

PATIENT
  Age: 79 Year
  Sex: Male
  Weight: 54.43 kg

DRUGS (9)
  1. ATORVASTATIN (ATORVASTATIN) (ATORVASTATIN) [Concomitant]
  2. ROFLUMILAST (ROFLUMILAST) (TABLETS) [Suspect]
     Dosage: 500 MCG (500 MCG, 1 IN 1 D), ORAL
     Route: 048
  3. FINASTERIDE (FINASTERIDE) (FINASTERIDE) [Concomitant]
  4. PLAVIX (CLOPIDOGREL BISULFATE) (CLOPIDOGREL BISULFATE) [Concomitant]
  5. TAMSULOSIN (TAMSULOSIN) (TAMSULOSIN) [Concomitant]
  6. SYMBICORT (BUDESONIDE, FORMOTEROL FUMARATE) (BUDESONIDE, FORMOTEROL FU [Concomitant]
  7. APO-SALVENT (SALBUTAMOL) (SALBUTAMOL) [Concomitant]
  8. RAMIPRIL [Concomitant]
  9. SPIRIVA (TIOTROPIUM BROMIDE) (TIOTROPIUM BROMIDE) [Concomitant]

REACTIONS (3)
  - INSOMNIA [None]
  - ECCHYMOSIS [None]
  - MYALGIA [None]
